FAERS Safety Report 24427094 (Version 1)
Quarter: 2024Q4

REPORT INFORMATION
  Report Type: Spontaneous
  Country: US (occurrence: None)
  Receive Date: 20241010
  Receipt Date: 20241010
  Transmission Date: 20250114
  Serious: Yes (Disabling)
  Sender: Public
  Company Number: None

PATIENT
  Age: 46 Year
  Sex: Female
  Weight: 55.35 kg

DRUGS (12)
  1. SCOPOLAMINE TRANSDERMAL SYSTEM [Suspect]
     Active Substance: SCOPOLAMINE
     Indication: Procedural nausea
     Dosage: OTHER QUANTITY : 1 PATCH(ES);?OTHER FREQUENCY : 3 DAYS;?
     Route: 062
     Dates: start: 20241001, end: 20241003
  2. PROGESTERONE [Concomitant]
     Active Substance: PROGESTERONE
  3. Women^s Multivitamin [Concomitant]
  4. METHYLCOBALAMIN [Concomitant]
     Active Substance: METHYLCOBALAMIN
  5. VITAMIN B-COMPLEX [Concomitant]
     Active Substance: DEXPANTHENOL\NIACINAMIDE\PYRIDOXINE HYDROCHLORIDE\RIBOFLAVIN 5^-PHOSPHATE SODIUM\THIAMINE HYDROCHLOR
  6. PYRIDOXINE HYDROCHLORIDE [Concomitant]
     Active Substance: PYRIDOXINE HYDROCHLORIDE
  7. FISH OIL [Concomitant]
     Active Substance: FISH OIL
  8. VITAMIN D [Concomitant]
     Active Substance: VITAMIN D NOS
  9. VITAMIN A [Concomitant]
     Active Substance: VITAMIN A
  10. VITAMIN K [Concomitant]
     Active Substance: PHYTONADIONE
  11. MAGNESIUM GLYCINATE [Concomitant]
     Active Substance: MAGNESIUM GLYCINATE
  12. CALCIUM [Concomitant]
     Active Substance: CALCIUM

REACTIONS (9)
  - Dizziness [None]
  - Vision blurred [None]
  - Gait disturbance [None]
  - Head discomfort [None]
  - Heart rate increased [None]
  - Disturbance in attention [None]
  - Anxiety [None]
  - Withdrawal syndrome [None]
  - Hypersensitivity [None]

NARRATIVE: CASE EVENT DATE: 20241003
